FAERS Safety Report 9449115 (Version 1)
Quarter: 2013Q3

REPORT INFORMATION
  Report Type: Spontaneous
  Country: US (occurrence: None)
  Receive Date: 20130806
  Receipt Date: 20130806
  Transmission Date: 20140515
  Serious: Yes (Other)
  Sender: FDA-Public Use
  Company Number: HRA-MET20130024

PATIENT
  Sex: Female

DRUGS (4)
  1. METYRAPONE [Suspect]
     Indication: CUSHING^S SYNDROME
     Dosage: 1 D
     Route: 048
     Dates: start: 19870819, end: 19870825
  2. MITOTANE [Concomitant]
  3. KETOCONAZOLE [Concomitant]
  4. AMINOGLUTETHIMIDE [Concomitant]

REACTIONS (5)
  - Hypokalaemia [None]
  - Nausea [None]
  - Vomiting [None]
  - Hypertension [None]
  - Hypercorticoidism [None]
